FAERS Safety Report 15258574 (Version 1)
Quarter: 2018Q3

REPORT INFORMATION
  Report Type: Spontaneous
  Country: US (occurrence: US)
  Receive Date: 20180809
  Receipt Date: 20180809
  Transmission Date: 20181010
  Serious: No
  Sender: FDA-Public Use
  Company Number: US-LUPIN PHARMACEUTICALS INC.-2018-04288

PATIENT
  Age: 26 Year
  Sex: Female

DRUGS (1)
  1. PAROXETINE. [Suspect]
     Active Substance: PAROXETINE
     Indication: AFFECTIVE DISORDER
     Dosage: 20 MG, UNK
     Route: 065

REACTIONS (2)
  - Vision blurred [Unknown]
  - Headache [Unknown]
